FAERS Safety Report 9629777 (Version 7)
Quarter: 2014Q1

REPORT INFORMATION
  Report Type: Report from Study
  Country: JP (occurrence: JP)
  Receive Date: 20131017
  Receipt Date: 20140324
  Transmission Date: 20141002
  Serious: Yes (Hospitalization)
  Sender: FDA-Public Use
  Company Number: JP-PFIZER INC-2013293730

PATIENT
  Age: 77 Year
  Sex: Male
  Weight: 59 kg

DRUGS (10)
  1. XELJANZ [Suspect]
     Indication: RHEUMATOID ARTHRITIS
     Dosage: 5 MG, 2X/DAY
     Route: 048
     Dates: start: 20130730, end: 20131014
  2. PREDNISOLONE [Suspect]
     Dosage: 20 MG, UNK
     Dates: start: 201310
  3. PREDONINE [Concomitant]
     Indication: RHEUMATOID ARTHRITIS
     Dosage: 1 MG, DAILY
     Route: 048
     Dates: start: 20110118, end: 20111114
  4. PREDONINE [Concomitant]
     Dosage: 5 MG, DAILY
     Route: 048
     Dates: start: 20111115, end: 20130827
  5. PREDONINE [Concomitant]
     Dosage: 4 MG, DAILY
     Route: 048
     Dates: start: 20130828
  6. HUMALOG MIX 25 [Concomitant]
     Indication: DIABETES MELLITUS
     Dosage: UNK
  7. PARIET [Concomitant]
     Dosage: UNK
     Route: 048
  8. PYDOXAL [Concomitant]
     Dosage: UNK
     Route: 048
  9. LOXONIN [Concomitant]
     Dosage: UNK
     Route: 048
  10. RECALBON [Concomitant]
     Dosage: UNK
     Route: 048

REACTIONS (1)
  - Cardiac failure [Recovering/Resolving]
